FAERS Safety Report 5078349-1 (Version None)
Quarter: 2006Q3

REPORT INFORMATION
  Report Type: 
  Country: None (occurrence: None)
  Receive Date: 20060811
  Receipt Date: 20060724
  Transmission Date: 20061208
  Serious: Yes (Other)
  Sender: FDA-Public Use
  Company Number: US-GLAXOSMITHKLINE-A0613312A

PATIENT
  Age: 64 Year
  Sex: Male

DRUGS (1)
  1. REQUIP [Suspect]
     Indication: PARKINSON'S DISEASE
     Dosage: 2MG THREE TIMES PER DAY
     Route: 048
     Dates: start: 20060601, end: 20060718

REACTIONS (10)
  - ANXIETY [None]
  - COLD SWEAT [None]
  - DRUG INEFFECTIVE [None]
  - DRUG WITHDRAWAL SYNDROME [None]
  - FORMICATION [None]
  - FUNGAL SKIN INFECTION [None]
  - HYPERHIDROSIS [None]
  - PARKINSON'S DISEASE [None]
  - PRURITUS [None]
  - RASH PRURITIC [None]
